FAERS Safety Report 20862538 (Version 1)
Quarter: 2022Q2

REPORT INFORMATION
  Report Type: Spontaneous
  Country: RU (occurrence: None)
  Receive Date: 20220523
  Receipt Date: 20220523
  Transmission Date: 20220721
  Serious: Yes (Other)
  Sender: FDA-Public Use
  Company Number: RU-ROCHE-3098335

PATIENT
  Age: 5 Year
  Sex: Male

DRUGS (2)
  1. EMICIZUMAB [Suspect]
     Active Substance: EMICIZUMAB
     Indication: Factor VIII deficiency
     Dosage: FOR 4 WEEKS
     Route: 065
     Dates: start: 202110
  2. EMICIZUMAB [Suspect]
     Active Substance: EMICIZUMAB
     Dosage: RECOMMENDED A WEEKLY REGIMEN OF 1.5 MG/KG)
     Route: 065

REACTIONS (3)
  - Post procedural haemorrhage [Unknown]
  - Dental fistula [Unknown]
  - Periodontitis [Unknown]

NARRATIVE: CASE EVENT DATE: 20211201
